FAERS Safety Report 13356173 (Version 1)
Quarter: 2017Q1

REPORT INFORMATION
  Report Type: Spontaneous
  Country: US (occurrence: US)
  Receive Date: 20170321
  Receipt Date: 20170321
  Transmission Date: 20170429
  Serious: Yes (Other)
  Sender: FDA-Public Use
  Company Number: US-ASTRAZENECA-2017SE27123

PATIENT
  Age: 29629 Day
  Sex: Female
  Weight: 80.3 kg

DRUGS (14)
  1. FASLODEX [Suspect]
     Active Substance: FULVESTRANT
     Indication: BREAST CANCER METASTATIC
     Dosage: DOSE UNKNOWN
     Route: 030
     Dates: start: 201010
  2. KETOCONAZOLE. [Concomitant]
     Active Substance: KETOCONAZOLE
     Route: 061
  3. MIRTAZAPINE. [Concomitant]
     Active Substance: MIRTAZAPINE
     Route: 048
  4. CALCIUM [Concomitant]
     Active Substance: CALCIUM
     Route: 048
  5. IBRANCE [Suspect]
     Active Substance: PALBOCICLIB
     Indication: BREAST CANCER METASTATIC
     Route: 048
     Dates: start: 20161215
  6. ARIMIDEX [Suspect]
     Active Substance: ANASTROZOLE
     Dosage: DOSE UNKNOWN
     Route: 048
     Dates: end: 20101004
  7. EFFEXOR XR [Concomitant]
     Active Substance: VENLAFAXINE HYDROCHLORIDE
     Dosage: 75 MG CAPSULE, EXT RELEASE 24 HR TAKE 1 CAPSULE(S) PO DAILY
  8. FOLIC ACID. [Concomitant]
     Active Substance: FOLIC ACID
     Route: 048
     Dates: start: 20141107
  9. LOTRISONE [Concomitant]
     Active Substance: BETAMETHASONE DIPROPIONATE\CLOTRIMAZOLE
     Dosage: 1 %--0.05 %CREAM (GRAM) TAKE 1 TOPICAL APPLICATION TOPICAL DAILY.
  10. ABILIFY [Concomitant]
     Active Substance: ARIPIPRAZOLE
     Route: 048
  11. IBRANCE [Suspect]
     Active Substance: PALBOCICLIB
     Indication: BREAST CANCER METASTATIC
     Route: 048
     Dates: start: 20161004
  12. METHENAMINE MANDELATE. [Concomitant]
     Active Substance: METHENAMINE MANDELATE
     Route: 048
  13. VITAMIN C [Concomitant]
     Active Substance: ASCORBIC ACID
     Route: 048
  14. VITAMIN D [Concomitant]
     Active Substance: CHOLECALCIFEROL
     Dosage: 400 UNITS
     Route: 048

REACTIONS (14)
  - Metastases to lymph nodes [Unknown]
  - Urinary tract infection [Unknown]
  - Lymphadenopathy mediastinal [Unknown]
  - Metastases to lung [Unknown]
  - Granulomatous lymphadenitis [Unknown]
  - Fall [Unknown]
  - Pruritus [None]
  - Seborrhoeic dermatitis [Unknown]
  - Neutropenia [Not Recovered/Not Resolved]
  - Thyroid mass [Unknown]
  - Cholelithiasis [Unknown]
  - Malignant neoplasm progression [Unknown]
  - Fatigue [Unknown]
  - Weight decreased [Unknown]

NARRATIVE: CASE EVENT DATE: 20161031
